FAERS Safety Report 8168216 (Version 3)
Quarter: 2013Q4

REPORT INFORMATION
  Report Type: Report from Study
  Country: US (occurrence: US)
  Receive Date: 20111004
  Receipt Date: 20131125
  Transmission Date: 20140711
  Serious: Yes (Hospitalization)
  Sender: FDA-Public Use
  Company Number: US-ELI_LILLY_AND_COMPANY-US201109006422

PATIENT
  Sex: Female

DRUGS (16)
  1. TERIPARATIDE [Suspect]
     Indication: OSTEOPOROSIS
     Dosage: 20 UG, QD
     Route: 065
     Dates: start: 201104, end: 201107
  2. TERIPARATIDE [Suspect]
     Dosage: 20 UG, QD
     Route: 065
     Dates: start: 201111, end: 20120103
  3. TERIPARATIDE [Suspect]
     Dosage: 20 UG, QD
     Route: 065
     Dates: start: 201203, end: 201302
  4. TERIPARATIDE [Suspect]
     Dosage: 20 UG, QD
     Route: 065
     Dates: start: 201304
  5. ENALAPRIL [Concomitant]
  6. PLAQUENIL                          /00072602/ [Concomitant]
     Indication: SYSTEMIC LUPUS ERYTHEMATOSUS
  7. ZOCOR [Concomitant]
  8. MULTIVITAMIN [Concomitant]
     Dosage: UNK, QD
  9. FOLIC ACID [Concomitant]
     Dosage: 400 UG, QD
  10. PROTONIX [Concomitant]
  11. DULCOLAX [Concomitant]
     Indication: DIARRHOEA
  12. CALCIUM W/VITAMIN D NOS [Concomitant]
     Dosage: UNK, BID
  13. PERCOCET [Concomitant]
     Indication: PAIN
  14. AMBIEN [Concomitant]
  15. SYNTHROID [Concomitant]
  16. DEXLANSOPRAZOLE [Concomitant]

REACTIONS (6)
  - Gastrooesophageal reflux disease [Unknown]
  - Gastrooesophageal reflux disease [Unknown]
  - Gallbladder enlargement [Recovering/Resolving]
  - Abdominal discomfort [Unknown]
  - Weight decreased [Unknown]
  - Myalgia [Unknown]
